FAERS Safety Report 9542312 (Version 2)
Quarter: 2013Q4

REPORT INFORMATION
  Report Type: Spontaneous
  Country: DE (occurrence: DE)
  Receive Date: 20130923
  Receipt Date: 20131021
  Transmission Date: 20140711
  Serious: Yes (Life-Threatening, Hospitalization)
  Sender: FDA-Public Use
  Company Number: DE-SANOFI-AVENTIS-2013SA091987

PATIENT
  Age: 53 Year
  Sex: Male
  Weight: 73 kg

DRUGS (5)
  1. ZALTRAP [Suspect]
     Indication: COLORECTAL CANCER
     Route: 051
     Dates: start: 20130312, end: 20130312
  2. ZALTRAP [Interacting]
     Indication: COLORECTAL CANCER
     Route: 051
     Dates: start: 20130521, end: 20130521
  3. IBUPROFEN [Interacting]
     Indication: ARTHRALGIA
     Route: 065
  4. IRINOTECAN HYDROCHLORIDE [Concomitant]
     Indication: COLORECTAL CANCER
  5. MARCUMAR [Concomitant]
     Indication: PRODUCT USED FOR UNKNOWN INDICATION
     Route: 048

REACTIONS (3)
  - Ulcer haemorrhage [Unknown]
  - Drug interaction [Unknown]
  - Perforated ulcer [Unknown]
